FAERS Safety Report 7660686-5 (Version None)
Quarter: 2011Q3

REPORT INFORMATION
  Report Type: 
  Country: None (occurrence: None)
  Receive Date: 20110805
  Receipt Date: 20101123
  Transmission Date: 20111222
  Serious: No
  Sender: FDA-Public Use
  Company Number: US-ABBOTT-10P-163-0687304-00

PATIENT
  Sex: Female
  Weight: 81.72 kg

DRUGS (7)
  1. NEXIUM [Concomitant]
     Indication: PRODUCT USED FOR UNKNOWN INDICATION
  2. ASPIRIN [Concomitant]
     Indication: PRODUCT USED FOR UNKNOWN INDICATION
  3. CRESTOR [Concomitant]
     Indication: PRODUCT USED FOR UNKNOWN INDICATION
  4. ACTOS [Concomitant]
     Indication: PRODUCT USED FOR UNKNOWN INDICATION
     Dosage: 1/2 PILL
  5. LOPID [Concomitant]
     Indication: PRODUCT USED FOR UNKNOWN INDICATION
  6. VIT B12 [Concomitant]
     Indication: PRODUCT USED FOR UNKNOWN INDICATION
  7. NIASPAN [Suspect]
     Indication: BLOOD TRIGLYCERIDES
     Dosage: 500MG X 2 PILLS AT BEDTIME
     Dates: start: 20101018

REACTIONS (2)
  - PRURITUS GENERALISED [None]
  - FLUSHING [None]
